FAERS Safety Report 18169319 (Version 6)
Quarter: 2025Q3

REPORT INFORMATION
  Report Type: Spontaneous
  Country: CA (occurrence: CA)
  Receive Date: 20200819
  Receipt Date: 20250808
  Transmission Date: 20251021
  Serious: Yes (Other)
  Sender: MYLAN
  Company Number: CA-PFIZER INC-2020314759

PATIENT
  Age: 55 Year
  Sex: Male

DRUGS (24)
  1. ATORVASTATIN CALCIUM [Interacting]
     Active Substance: ATORVASTATIN CALCIUM
     Indication: Acute myocardial infarction
     Dosage: 80 MILLIGRAM, QD (DIALY)
  2. ATORVASTATIN CALCIUM [Interacting]
     Active Substance: ATORVASTATIN CALCIUM
     Dosage: 80 MILLIGRAM, QD (DIALY)
  3. ATORVASTATIN CALCIUM [Interacting]
     Active Substance: ATORVASTATIN CALCIUM
     Dosage: 80 MILLIGRAM, QD (DIALY)
     Route: 065
  4. ATORVASTATIN CALCIUM [Interacting]
     Active Substance: ATORVASTATIN CALCIUM
     Dosage: 80 MILLIGRAM, QD (DIALY)
     Route: 065
  5. ATORVASTATIN CALCIUM [Interacting]
     Active Substance: ATORVASTATIN CALCIUM
  6. ATORVASTATIN CALCIUM [Interacting]
     Active Substance: ATORVASTATIN CALCIUM
  7. ATORVASTATIN CALCIUM [Interacting]
     Active Substance: ATORVASTATIN CALCIUM
     Route: 065
  8. ATORVASTATIN CALCIUM [Interacting]
     Active Substance: ATORVASTATIN CALCIUM
     Route: 065
  9. AMIODARONE [Interacting]
     Active Substance: AMIODARONE
     Indication: Atrial fibrillation
     Dosage: 400 MILLIGRAM, TID (3 EVERY 1 DAY)
  10. AMIODARONE [Interacting]
     Active Substance: AMIODARONE
     Dosage: 400 MILLIGRAM, TID (3 EVERY 1 DAY)
  11. AMIODARONE [Interacting]
     Active Substance: AMIODARONE
     Dosage: 400 MILLIGRAM, TID (3 EVERY 1 DAY)
     Route: 048
  12. AMIODARONE [Interacting]
     Active Substance: AMIODARONE
     Dosage: 400 MILLIGRAM, TID (3 EVERY 1 DAY)
     Route: 048
  13. AMIODARONE [Interacting]
     Active Substance: AMIODARONE
  14. AMIODARONE [Interacting]
     Active Substance: AMIODARONE
  15. AMIODARONE [Interacting]
     Active Substance: AMIODARONE
     Route: 065
  16. AMIODARONE [Interacting]
     Active Substance: AMIODARONE
     Route: 065
  17. CIPROFLOXACIN HYDROCHLORIDE [Interacting]
     Active Substance: CIPROFLOXACIN HYDROCHLORIDE
     Indication: Pneumonia bacterial
     Dosage: 750 MILLIGRAM, BID (2 EVERY 1 DAYS)
  18. CIPROFLOXACIN HYDROCHLORIDE [Interacting]
     Active Substance: CIPROFLOXACIN HYDROCHLORIDE
     Dosage: 750 MILLIGRAM, BID (2 EVERY 1 DAYS)
  19. CIPROFLOXACIN HYDROCHLORIDE [Interacting]
     Active Substance: CIPROFLOXACIN HYDROCHLORIDE
     Dosage: 750 MILLIGRAM, BID (2 EVERY 1 DAYS)
     Route: 048
  20. CIPROFLOXACIN HYDROCHLORIDE [Interacting]
     Active Substance: CIPROFLOXACIN HYDROCHLORIDE
     Dosage: 750 MILLIGRAM, BID (2 EVERY 1 DAYS)
     Route: 048
  21. CIPROFLOXACIN HYDROCHLORIDE [Interacting]
     Active Substance: CIPROFLOXACIN HYDROCHLORIDE
  22. CIPROFLOXACIN HYDROCHLORIDE [Interacting]
     Active Substance: CIPROFLOXACIN HYDROCHLORIDE
  23. CIPROFLOXACIN HYDROCHLORIDE [Interacting]
     Active Substance: CIPROFLOXACIN HYDROCHLORIDE
     Route: 065
  24. CIPROFLOXACIN HYDROCHLORIDE [Interacting]
     Active Substance: CIPROFLOXACIN HYDROCHLORIDE
     Route: 065

REACTIONS (2)
  - Rhabdomyolysis [Unknown]
  - Drug interaction [Unknown]
